FAERS Safety Report 24031715 (Version 1)
Quarter: 2024Q2

REPORT INFORMATION
  Report Type: Spontaneous
  Country: PT (occurrence: PT)
  Receive Date: 20240629
  Receipt Date: 20240629
  Transmission Date: 20240716
  Serious: Yes (Hospitalization)
  Sender: FDA-Public Use
  Company Number: PT-MLMSERVICE-20240613-PI100412-00330-1

PATIENT

DRUGS (1)
  1. VENLAFAXINE [Suspect]
     Active Substance: VENLAFAXINE HYDROCHLORIDE
     Indication: Persistent depressive disorder
     Route: 065

REACTIONS (3)
  - Drug dose titration not performed [Unknown]
  - Withdrawal syndrome [Recovered/Resolved]
  - Hypomania [Recovered/Resolved]
